FAERS Safety Report 5595933-7 (Version None)
Quarter: 2008Q1

REPORT INFORMATION
  Report Type: 
  Country: None (occurrence: None)
  Receive Date: 20080118
  Receipt Date: 20080111
  Transmission Date: 20080703
  Serious: Yes (Hospitalization)
  Sender: FDA-Public Use
  Company Number: CH-SANOFI-SYNTHELABO-A01200713708

PATIENT
  Age: 84 Year
  Sex: Male
  Weight: 90 kg

DRUGS (7)
  1. BELOC-ZOK [Suspect]
     Indication: CARDIAC FAILURE
     Dosage: 50 MG DAILY
     Route: 048
  2. BELOC-ZOK [Suspect]
     Indication: VENTRICULAR TACHYCARDIA
     Dosage: 50 MG DAILY
     Route: 048
  3. CORDARONE [Suspect]
     Indication: VENTRICULAR TACHYCARDIA
     Dosage: 200 MG DAILY
     Route: 048
     Dates: start: 20061201, end: 20071001
  4. CORDARONE [Suspect]
     Indication: VENTRICULAR FIBRILLATION
     Dosage: 200 MG DAILY
     Route: 048
     Dates: start: 20061201, end: 20071001
  5. ELIGARD [Suspect]
     Indication: PROSTATE CANCER
     Route: 058
     Dates: start: 20070301, end: 20070901
  6. TOREM [Suspect]
     Indication: CARDIAC FAILURE
     Dosage: 20 MG DAILY
     Route: 048
  7. TOREM [Suspect]
     Indication: ESSENTIAL HYPERTENSION
     Dosage: 20 MG DAILY
     Route: 048

REACTIONS (6)
  - ABDOMINAL PAIN [None]
  - ASCITES [None]
  - CHOLESTASIS [None]
  - PROTHROMBIN TIME ABNORMAL [None]
  - TENSION [None]
  - WHITE BLOOD CELL COUNT INCREASED [None]
